FAERS Safety Report 8150807-2 (Version None)
Quarter: 2012Q1

REPORT INFORMATION
  Report Type: 
  Country: None (occurrence: None)
  Receive Date: 20120220
  Receipt Date: 20120213
  Transmission Date: 20120608
  Serious: Yes (Death)
  Sender: FDA-Public Use
  Company Number: RU-SANOFI-AVENTIS-2012SA004689

PATIENT
  Age: 59 Year
  Sex: Female
  Weight: 44 kg

DRUGS (4)
  1. BLINDED THERAPY [Suspect]
     Indication: BREAST CANCER
     Route: 042
     Dates: start: 20111114, end: 20111114
  2. DOCETAXEL [Suspect]
     Route: 041
     Dates: start: 20111226, end: 20111226
  3. DOCETAXEL [Suspect]
     Indication: BREAST CANCER
     Route: 041
     Dates: start: 20111114, end: 20111114
  4. BLINDED THERAPY [Suspect]
     Route: 042
     Dates: start: 20111226, end: 20111226

REACTIONS (2)
  - ANURIA [None]
  - RENAL FAILURE ACUTE [None]
